FAERS Safety Report 18737207 (Version 1)
Quarter: 2021Q1

REPORT INFORMATION
  Report Type: Spontaneous
  Country: IN (occurrence: US)
  Receive Date: 20210113
  Receipt Date: 20210113
  Transmission Date: 20210419
  Serious: No
  Sender: FDA-Public Use
  Company Number: IN-009507513-2012USA013047

PATIENT
  Age: 30 Year
  Sex: Female
  Weight: 44.4 kg

DRUGS (4)
  1. REMERON [Suspect]
     Active Substance: MIRTAZAPINE
     Indication: DECREASED APPETITE
     Dosage: TITRATED UP TO 15 MG NIGHTLY
     Route: 048
  2. REMERON [Suspect]
     Active Substance: MIRTAZAPINE
     Indication: ANXIETY
     Dosage: MORNING DOSE OF 7.5 MG
     Route: 048
  3. DIPHENHYDRAMINE. [Concomitant]
     Active Substance: DIPHENHYDRAMINE
     Indication: PROPHYLAXIS
     Dosage: 25 MILLIGRAM, BID
  4. BENZTROPINE MESYLATE. [Concomitant]
     Active Substance: BENZTROPINE MESYLATE
     Indication: PROPHYLAXIS
     Dosage: 1 MILLIGRAM, BID

REACTIONS (1)
  - Mania [Recovering/Resolving]
